FAERS Safety Report 24398662 (Version 1)
Quarter: 2024Q4

REPORT INFORMATION
  Report Type: Spontaneous
  Country: US (occurrence: US)
  Receive Date: 20241004
  Receipt Date: 20241004
  Transmission Date: 20250115
  Serious: Yes (Death, Hospitalization, Other)
  Sender: MERCK
  Company Number: US-009507513-2410USA000249

PATIENT
  Age: 70 Year
  Sex: Male

DRUGS (1)
  1. KEYTRUDA [Suspect]
     Active Substance: PEMBROLIZUMAB
     Indication: Renal cancer stage IV
     Dosage: 200 MILLIGRAM, Q3W
     Route: 042

REACTIONS (1)
  - Colitis [Fatal]
